FAERS Safety Report 5917575-3 (Version None)
Quarter: 2008Q4

REPORT INFORMATION
  Report Type: 
  Country: None (occurrence: None)
  Receive Date: 20081010
  Receipt Date: 20081010
  Transmission Date: 20090506
  Serious: Yes (Hospitalization)
  Sender: FDA-Public Use
  Company Number: None

PATIENT
  Age: 71 Year
  Sex: Male
  Weight: 97 kg

DRUGS (3)
  1. CLOPIDOGREL [Suspect]
     Indication: CARDIOVASCULAR DISORDER
     Dosage: 75 MG EVERY DAY PO
     Route: 048
     Dates: start: 20020717
  2. CLOPIDOGREL [Suspect]
     Indication: SURGERY
     Dosage: 75 MG EVERY DAY PO
     Route: 048
     Dates: start: 20020717
  3. ASPIRIN [Suspect]
     Indication: CARDIOVASCULAR DISORDER
     Dates: start: 20010510

REACTIONS (2)
  - HAEMORRHAGE [None]
  - RETROPERITONEAL HAEMORRHAGE [None]
